FAERS Safety Report 5381728-6 (Version None)
Quarter: 2007Q3

REPORT INFORMATION
  Report Type: 
  Country: None (occurrence: None)
  Receive Date: 20070709
  Receipt Date: 20070628
  Transmission Date: 20080115
  Serious: No
  Sender: FDA-Public Use
  Company Number: PHFR2007GB01175

PATIENT
  Age: 29 Year
  Sex: Female
  Weight: 75 kg

DRUGS (4)
  1. TEGRETOL [Suspect]
     Indication: EPILEPSY
     Dosage: 200 MG, BID
     Route: 048
     Dates: start: 20050426
  2. HIBISCRUB [Suspect]
     Route: 061
  3. SALBUTAMOL [Concomitant]
     Indication: ASTHMA
     Dosage: PRN
     Dates: start: 20061121
  4. QVAR 40 [Concomitant]
     Indication: ASTHMA
     Dosage: 50 UG, BID
     Dates: start: 20070430

REACTIONS (4)
  - ALCOHOL POISONING [None]
  - CONVULSION [None]
  - FEELING ABNORMAL [None]
  - MEMORY IMPAIRMENT [None]
